FAERS Safety Report 4634825-4 (Version None)
Quarter: 2005Q2

REPORT INFORMATION
  Report Type: 
  Country: None (occurrence: None)
  Receive Date: 20050412
  Receipt Date: 20050404
  Transmission Date: 20051028
  Serious: Yes (Hospitalization)
  Sender: FDA-Public Use
  Company Number: 200510891GDS

PATIENT
  Age: 70 Year
  Sex: Female

DRUGS (5)
  1. CIPROFLOXACIN [Suspect]
     Indication: OSTEOMYELITIS
     Dosage: INTRAVENOUS
     Route: 042
     Dates: end: 20050301
  2. AUGMENTIN [Concomitant]
  3. ANTIEPILEPTICS [Concomitant]
  4. ASPEGIC 1000 [Concomitant]
  5. MORPHINE [Concomitant]

REACTIONS (9)
  - ATRIAL FIBRILLATION [None]
  - BRAIN STEM SYNDROME [None]
  - OEDEMA [None]
  - PERICARDIAL EFFUSION [None]
  - PERICARDITIS [None]
  - PLEURAL EFFUSION [None]
  - SOMNOLENCE [None]
  - TRANSIENT ISCHAEMIC ATTACK [None]
  - VIRAL INFECTION [None]
